FAERS Safety Report 11501957 (Version 2)
Quarter: 2015Q4

REPORT INFORMATION
  Report Type: Spontaneous
  Country: JP (occurrence: JP)
  Receive Date: 20150914
  Receipt Date: 20151028
  Transmission Date: 20160304
  Serious: Yes (Life-Threatening, Hospitalization)
  Sender: FDA-Public Use
  Company Number: JP-BAYER-2015-416942

PATIENT
  Age: 74 Year
  Sex: Male
  Weight: 58.6 kg

DRUGS (9)
  1. HARNAL [Concomitant]
     Active Substance: TAMSULOSIN HYDROCHLORIDE
     Route: 048
  2. VESICARE [Concomitant]
     Active Substance: SOLIFENACIN SUCCINATE
     Route: 048
  3. AMBROXOL HYDROCHLORIDE [Concomitant]
     Active Substance: AMBROXOL HYDROCHLORIDE
     Indication: SPUTUM RETENTION
     Dosage: 45 MG, QD
     Route: 048
     Dates: start: 201501
  4. BAYASPIRIN [Suspect]
     Active Substance: ASPIRIN
     Indication: CEREBRAL INFARCTION
     Dosage: 1 DF, QD
     Route: 048
  5. BAYASPIRIN [Suspect]
     Active Substance: ASPIRIN
     Indication: CEREBRAL INFARCTION
     Dosage: 1 DF, QD
     Route: 048
     Dates: start: 20150117
  6. HERBESSER [Concomitant]
     Active Substance: DILTIAZEM HYDROCHLORIDE
     Dosage: 1 DF, QD
     Route: 048
  7. CELECOXIB. [Concomitant]
     Active Substance: CELECOXIB
     Indication: WOUND COMPLICATION
     Dosage: 400 MG, QD
     Route: 048
     Dates: start: 201501
  8. ALLORIN [Concomitant]
     Dosage: 2 DF, QD
     Route: 048
  9. KAMAG G [Concomitant]
     Active Substance: MAGNESIUM OXIDE
     Indication: CONSTIPATION
     Dosage: 1500 MG, QD
     Route: 048
     Dates: start: 201501

REACTIONS (3)
  - Pulmonary haematoma [Recovered/Resolved]
  - Pneumothorax [Recovered/Resolved]
  - Lung cyst [None]

NARRATIVE: CASE EVENT DATE: 20150113
